FAERS Safety Report 9968379 (Version 1)
Quarter: 2014Q1

REPORT INFORMATION
  Report Type: Report from Study
  Country: US (occurrence: US)
  Receive Date: 20140306
  Receipt Date: 20140306
  Transmission Date: 20141002
  Serious: Yes (Hospitalization)
  Sender: FDA-Public Use
  Company Number: US-ABBVIE-13P-163-1143053-00

PATIENT
  Age: 55 Year
  Sex: Male
  Weight: 79.45 kg

DRUGS (11)
  1. HUMIRA [Suspect]
     Indication: CROHN^S DISEASE
     Route: 058
     Dates: start: 201303
  2. PROTONIX [Concomitant]
     Indication: GASTROOESOPHAGEAL REFLUX DISEASE
  3. PENTASA [Concomitant]
     Indication: CROHN^S DISEASE
  4. LOMOTIL [Concomitant]
     Indication: CROHN^S DISEASE
  5. SYMAX [Concomitant]
     Indication: PAIN
  6. SYMAX [Concomitant]
     Indication: CROHN^S DISEASE
  7. WARFARIN [Concomitant]
     Indication: ANTICOAGULANT THERAPY
  8. KLOR-CON [Concomitant]
     Indication: VITAMIN SUPPLEMENTATION
  9. TAZITA [Concomitant]
     Indication: HYPERTENSION
  10. HYDROCHLOROTH [Concomitant]
     Indication: HYPERTENSION
  11. QUESTRON [Concomitant]
     Indication: DIARRHOEA

REACTIONS (6)
  - Cholelithiasis [Recovered/Resolved]
  - Clostridium difficile infection [Recovered/Resolved]
  - Clostridium difficile infection [Recovered/Resolved]
  - Flatulence [Recovered/Resolved]
  - Diarrhoea [Recovered/Resolved]
  - Chest pain [Recovered/Resolved]
